FAERS Safety Report 23612534 (Version 3)
Quarter: 2024Q3

REPORT INFORMATION
  Report Type: Spontaneous
  Country: JP (occurrence: JP)
  Receive Date: 20240308
  Receipt Date: 20240715
  Transmission Date: 20241016
  Serious: Yes (Life-Threatening, Hospitalization)
  Sender: EISAI
  Company Number: JP-Eisai-202309809_FYC_P_1

PATIENT
  Age: 15 Year
  Sex: Female

DRUGS (23)
  1. PERAMPANEL [Suspect]
     Active Substance: PERAMPANEL
     Indication: Temporal lobe epilepsy
     Route: 048
     Dates: start: 201706, end: 20170706
  2. PERAMPANEL [Suspect]
     Active Substance: PERAMPANEL
     Route: 048
     Dates: start: 20170707, end: 20170725
  3. PERAMPANEL [Suspect]
     Active Substance: PERAMPANEL
     Dosage: FREQUENCY UNKNOWN
     Route: 048
     Dates: start: 20170726, end: 20170809
  4. PERAMPANEL [Suspect]
     Active Substance: PERAMPANEL
     Dosage: FREQUENCY UNKNOWN
     Route: 048
     Dates: start: 20170810, end: 20170906
  5. PERAMPANEL [Suspect]
     Active Substance: PERAMPANEL
     Dosage: FREQUENCY UNKNOWN
     Route: 048
     Dates: start: 20170907, end: 20181018
  6. PERAMPANEL [Suspect]
     Active Substance: PERAMPANEL
     Route: 048
     Dates: start: 20181019
  7. TOPIRAMATE [Concomitant]
     Active Substance: TOPIRAMATE
     Indication: Temporal lobe epilepsy
     Route: 065
  8. TOPIRAMATE [Concomitant]
     Active Substance: TOPIRAMATE
     Route: 065
  9. TOPIRAMATE [Concomitant]
     Active Substance: TOPIRAMATE
     Route: 065
  10. TOPIRAMATE [Concomitant]
     Active Substance: TOPIRAMATE
     Route: 065
     Dates: start: 201605
  11. TOPIRAMATE [Concomitant]
     Active Substance: TOPIRAMATE
     Route: 065
     Dates: end: 201606
  12. TOPIRAMATE [Concomitant]
     Active Substance: TOPIRAMATE
     Route: 065
     Dates: start: 201612
  13. TOPIRAMATE [Concomitant]
     Active Substance: TOPIRAMATE
     Route: 065
     Dates: start: 201704
  14. TOPIRAMATE [Concomitant]
     Active Substance: TOPIRAMATE
     Route: 065
     Dates: start: 201705
  15. TOPIRAMATE [Concomitant]
     Active Substance: TOPIRAMATE
     Route: 065
     Dates: start: 201810
  16. TOPIRAMATE [Concomitant]
     Active Substance: TOPIRAMATE
     Route: 065
     Dates: start: 202201
  17. TOPIRAMATE [Concomitant]
     Active Substance: TOPIRAMATE
     Route: 065
     Dates: start: 202203
  18. TOPIRAMATE [Concomitant]
     Active Substance: TOPIRAMATE
     Route: 065
     Dates: start: 202305, end: 202401
  19. RISPERIDONE [Concomitant]
     Active Substance: RISPERIDONE
     Indication: Schizophrenia
     Route: 065
     Dates: start: 202103
  20. RISPERIDONE [Concomitant]
     Active Substance: RISPERIDONE
     Route: 065
     Dates: start: 202105
  21. RISPERIDONE [Concomitant]
     Active Substance: RISPERIDONE
     Dosage: +0.5MG AS NEEDED
     Route: 065
     Dates: start: 202111, end: 202209
  22. OLANZAPINE [Concomitant]
     Active Substance: OLANZAPINE
     Route: 065
     Dates: start: 202207
  23. OLANZAPINE [Concomitant]
     Active Substance: OLANZAPINE
     Route: 065
     Dates: start: 202312

REACTIONS (2)
  - Schizophrenia [Not Recovered/Not Resolved]
  - Suicide attempt [Recovered/Resolved]

NARRATIVE: CASE EVENT DATE: 20210201
